FAERS Safety Report 6001326-0 (Version None)
Quarter: 2008Q4

REPORT INFORMATION
  Report Type: 
  Country: None (occurrence: None)
  Receive Date: 20081215
  Receipt Date: 20071120
  Transmission Date: 20090506
  Serious: No
  Sender: FDA-Public Use
  Company Number: US-AMGEN-KDL251259

PATIENT
  Sex: Female

DRUGS (3)
  1. ENBREL [Suspect]
     Indication: RHEUMATOID ARTHRITIS
     Route: 058
     Dates: start: 20070601
  2. ENBREL [Suspect]
     Indication: BEHCET'S SYNDROME
  3. METHOTREXATE [Concomitant]
     Route: 048
     Dates: start: 20071001

REACTIONS (9)
  - AMNESIA [None]
  - ARTHRALGIA [None]
  - CYSTITIS NONINFECTIVE [None]
  - DYSURIA [None]
  - FATIGUE [None]
  - MICTURITION URGENCY [None]
  - MOUTH ULCERATION [None]
  - POLLAKIURIA [None]
  - ULCERATIVE KERATITIS [None]
